FAERS Safety Report 11456084 (Version 1)
Quarter: 2015Q3

REPORT INFORMATION
  Report Type: Spontaneous
  Country: US (occurrence: US)
  Receive Date: 20150903
  Receipt Date: 20150903
  Transmission Date: 20151125
  Serious: No
  Sender: FDA-Public Use
  Company Number: PHEH2015US015736

PATIENT

DRUGS (1)
  1. ESTRADIOL. [Suspect]
     Active Substance: ESTRADIOL
     Indication: PRODUCT USED FOR UNKNOWN INDICATION
     Dosage: 0.25 MG, QD
     Route: 062

REACTIONS (10)
  - Insomnia [Unknown]
  - Discomfort [Unknown]
  - Headache [Unknown]
  - Sleep disorder [Unknown]
  - Abdominal distension [Unknown]
  - Chest pain [Unknown]
  - Feeling abnormal [Unknown]
  - Eating disorder [Unknown]
  - Dyspnoea [Unknown]
  - Nausea [Unknown]
